FAERS Safety Report 10398246 (Version 1)
Quarter: 2014Q3

REPORT INFORMATION
  Report Type: Spontaneous
  Country: US (occurrence: None)
  Receive Date: 20140818
  Receipt Date: 20140818
  Transmission Date: 20150326
  Serious: Yes (Hospitalization)
  Sender: FDA-Public Use
  Company Number: None

PATIENT
  Age: 41 Year
  Sex: Female
  Weight: 73.9 kg

DRUGS (1)
  1. CRIZOTINIB [Suspect]
     Active Substance: CRIZOTINIB

REACTIONS (5)
  - Pulmonary embolism [None]
  - Drug effect decreased [None]
  - Pneumonia [None]
  - Empyema [None]
  - Pleural effusion [None]

NARRATIVE: CASE EVENT DATE: 20140714
